FAERS Safety Report 7536676-X (Version None)
Quarter: 2011Q2

REPORT INFORMATION
  Report Type: 
  Country: None (occurrence: None)
  Receive Date: 20110609
  Receipt Date: 20110601
  Transmission Date: 20111010
  Serious: Yes (Life-Threatening, Hospitalization, Disabling, Other)
  Sender: FDA-Public Use
  Company Number: A0924929A

PATIENT
  Age: 10 Year
  Sex: Female

DRUGS (4)
  1. RISPERDAL [Concomitant]
     Indication: BIPOLAR DISORDER
     Dosage: 2MG THREE TIMES PER DAY
     Route: 048
     Dates: start: 20020101, end: 20061104
  2. AMOXICILLIN [Concomitant]
     Indication: STREPTOCOCCAL INFECTION
     Dates: start: 20061031, end: 20061101
  3. DEPAKOTE [Suspect]
     Indication: BIPOLAR DISORDER
     Dosage: 250MG THREE TIMES PER DAY
     Route: 048
     Dates: start: 20040101, end: 20061104
  4. LAMICTAL [Suspect]
     Indication: BIPOLAR DISORDER
     Dosage: 25MG PER DAY
     Route: 048
     Dates: start: 20061001, end: 20061023

REACTIONS (22)
  - LETHARGY [None]
  - HYPERSENSITIVITY [None]
  - SKIN EXFOLIATION [None]
  - DISSEMINATED INTRAVASCULAR COAGULATION [None]
  - LEARNING DISABILITY [None]
  - BLISTER [None]
  - PROTHROMBIN TIME PROLONGED [None]
  - LIP ULCERATION [None]
  - OEDEMA PERIPHERAL [None]
  - STEVENS-JOHNSON SYNDROME [None]
  - FATIGUE [None]
  - DECREASED APPETITE [None]
  - ACTIVATED PARTIAL THROMBOPLASTIN TIME PROLONGED [None]
  - SLOW RESPONSE TO STIMULI [None]
  - DEPRESSED LEVEL OF CONSCIOUSNESS [None]
  - PYREXIA [None]
  - RASH [None]
  - GENERAL PHYSICAL HEALTH DETERIORATION [None]
  - CONJUNCTIVITIS [None]
  - LIVER FUNCTION TEST ABNORMAL [None]
  - FIBRIN D DIMER INCREASED [None]
  - DRUG INTERACTION [None]
